FAERS Safety Report 7205792-4 (Version None)
Quarter: 2010Q4

REPORT INFORMATION
  Report Type: 
  Country: None (occurrence: None)
  Receive Date: 20101231
  Receipt Date: 20101227
  Transmission Date: 20110411
  Serious: Yes (Other)
  Sender: FDA-Public Use
  Company Number: US-PFIZER INC-2010179835

PATIENT
  Sex: Female
  Weight: 115 kg

DRUGS (6)
  1. CHANTIX [Suspect]
     Indication: SMOKING CESSATION THERAPY
     Dosage: 0.5 MG, 1X/DAY
     Route: 048
     Dates: start: 20090101, end: 20090101
  2. CHANTIX [Suspect]
     Dosage: UNK
     Dates: start: 20090101, end: 20090101
  3. CHANTIX [Suspect]
     Dosage: 1 MG, 2X/DAY
     Dates: start: 20101201
  4. KLONOPIN [Concomitant]
     Indication: ANXIETY
     Dosage: UNK
  5. ZOLOFT [Concomitant]
     Indication: ANXIETY
     Dosage: UNK
  6. ZOLOFT [Concomitant]
     Indication: DEPRESSION

REACTIONS (1)
  - WEIGHT DECREASED [None]
